FAERS Safety Report 6402032-0 (Version None)
Quarter: 2009Q4

REPORT INFORMATION
  Report Type: 
  Country: None (occurrence: None)
  Receive Date: 20091015
  Receipt Date: 20091005
  Transmission Date: 20100525
  Serious: Yes (Other)
  Sender: FDA-Public Use
  Company Number: SE-JNJFOC-20091004376

PATIENT
  Age: 27 Year
  Sex: Female

DRUGS (5)
  1. KETOCONAZOLE [Suspect]
     Indication: BLOOD CORTISOL INCREASED
     Route: 065
  2. SPIRONOLACTONE [Suspect]
     Indication: BLOOD CORTISOL INCREASED
     Route: 065
  3. LABETALOL HCL [Suspect]
     Indication: HYPERTENSION
     Route: 065
  4. ISRADIPINE [Suspect]
     Indication: HYPERTENSION
     Route: 065
  5. LONG ACTING INSULIN [Suspect]
     Indication: DIABETES MELLITUS
     Route: 065

REACTIONS (3)
  - DRUG EXPOSURE DURING PREGNANCY [None]
  - OFF LABEL USE [None]
  - PREMATURE LABOUR [None]
